FAERS Safety Report 23745745 (Version 1)
Quarter: 2024Q2

REPORT INFORMATION
  Report Type: Spontaneous
  Country: ES (occurrence: ES)
  Receive Date: 20240416
  Receipt Date: 20240416
  Transmission Date: 20240716
  Serious: Yes (Other)
  Sender: FDA-Public Use
  Company Number: ES-ARROW-2012-15719

PATIENT
  Age: 11 Year
  Sex: Female

DRUGS (1)
  1. MONTELUKAST [Suspect]
     Active Substance: MONTELUKAST SODIUM
     Indication: Asthma exercise induced
     Dosage: UNK
     Route: 065

REACTIONS (1)
  - Alice in wonderland syndrome [Recovered/Resolved]
